FAERS Safety Report 6299198-2 (Version None)
Quarter: 2009Q3

REPORT INFORMATION
  Report Type: 
  Country: None (occurrence: None)
  Receive Date: 20090804
  Receipt Date: 20090723
  Transmission Date: 20100115
  Serious: Yes (Other)
  Sender: FDA-Public Use
  Company Number: 8049543

PATIENT
  Age: 13 Year
  Sex: Male

DRUGS (13)
  1. PREDNISOLONE [Suspect]
     Indication: HEART TRANSPLANT
  2. PREDNISOLONE [Suspect]
     Indication: IMMUNOSUPPRESSION
  3. TACROLIMUS [Suspect]
     Indication: HEART TRANSPLANT
  4. TACROLIMUS [Suspect]
     Indication: IMMUNOSUPPRESSION
  5. CYCLOPHOSPHAMIDE [Concomitant]
  6. VINCRISTINE [Concomitant]
  7. DOXORUBICIN HCL [Concomitant]
  8. CYTARABINE [Concomitant]
  9. THIOGUANINE [Concomitant]
  10. RITUXIMAB [Concomitant]
  11. METHOTREXATE [Concomitant]
  12. CYCLOSPORINE [Concomitant]
  13. DEXRAZOXANE [Concomitant]

REACTIONS (8)
  - BACTERIAL SEPSIS [None]
  - CATHETER RELATED INFECTION [None]
  - EPSTEIN-BARR VIRUS ASSOCIATED LYMPHOPROLIFERATIVE DISORDER [None]
  - MUSCLE CONTRACTIONS INVOLUNTARY [None]
  - PNEUMOCYSTIS JIROVECI PNEUMONIA [None]
  - STAPHYLOCOCCAL BACTERAEMIA [None]
  - TIC [None]
  - TRANSPLANT [None]
